FAERS Safety Report 12690813 (Version 1)
Quarter: 2016Q3

REPORT INFORMATION
  Report Type: Spontaneous
  Country: US (occurrence: US)
  Receive Date: 20160826
  Receipt Date: 20160826
  Transmission Date: 20161109
  Serious: No
  Sender: FDA-Public Use
  Company Number: US-FRI-1000078079

PATIENT
  Age: 52 Year
  Sex: Female

DRUGS (6)
  1. LEXAPRO [Suspect]
     Active Substance: ESCITALOPRAM OXALATE
     Dosage: 10 MG
     Route: 048
     Dates: end: 201502
  2. LEXAPRO [Suspect]
     Active Substance: ESCITALOPRAM OXALATE
     Dosage: 10 MG
     Route: 048
     Dates: start: 2009
  3. VALACYCLOVIR [Concomitant]
     Active Substance: VALACYCLOVIR HYDROCHLORIDE
     Indication: HERPES SIMPLEX
     Route: 048
  4. LEXAPRO [Suspect]
     Active Substance: ESCITALOPRAM OXALATE
     Indication: DEPRESSION
     Dosage: 10 MG
     Route: 048
     Dates: start: 201505
  5. RISPERDAL [Suspect]
     Active Substance: RISPERIDONE
     Indication: PSYCHOTIC DISORDER
     Dosage: 0.5MG
     Route: 048
     Dates: start: 20150715, end: 20150722
  6. MULTIVITAMIN [Concomitant]
     Active Substance: VITAMINS

REACTIONS (32)
  - Mood swings [Not Recovered/Not Resolved]
  - Flatulence [Not Recovered/Not Resolved]
  - Dyspepsia [Not Recovered/Not Resolved]
  - Feeling hot [Not Recovered/Not Resolved]
  - Weight decreased [Unknown]
  - Paranoia [Unknown]
  - Screaming [Recovering/Resolving]
  - Anger [Recovering/Resolving]
  - Somnolence [Not Recovered/Not Resolved]
  - Swelling [Recovered/Resolved]
  - Weight increased [Not Recovered/Not Resolved]
  - Feeling abnormal [Not Recovered/Not Resolved]
  - Peripheral swelling [Recovered/Resolved]
  - Fat tissue increased [Not Recovered/Not Resolved]
  - Insomnia [Not Recovered/Not Resolved]
  - Abnormal weight gain [Recovered/Resolved]
  - Mental disorder [Not Recovered/Not Resolved]
  - Staring [Recovered/Resolved]
  - Depression [Not Recovered/Not Resolved]
  - Peripheral swelling [Recovered/Resolved]
  - Feeling of relaxation [Not Recovered/Not Resolved]
  - Weight increased [Not Recovered/Not Resolved]
  - Emotional distress [Recovering/Resolving]
  - Somnolence [Recovered/Resolved]
  - Fatigue [Recovered/Resolved]
  - Euphoric mood [Not Recovered/Not Resolved]
  - Drug ineffective [Not Recovered/Not Resolved]
  - Product physical issue [Unknown]
  - Anxiety [Recovered/Resolved]
  - Depressed mood [Recovered/Resolved]
  - Depressed mood [Not Recovered/Not Resolved]
  - Hallucination, auditory [Not Recovered/Not Resolved]

NARRATIVE: CASE EVENT DATE: 201505
